FAERS Safety Report 7029529-7 (Version None)
Quarter: 2010Q4

REPORT INFORMATION
  Report Type: 
  Country: None (occurrence: None)
  Receive Date: 20101001
  Receipt Date: 20100928
  Transmission Date: 20110411
  Serious: Yes (Hospitalization)
  Sender: FDA-Public Use
  Company Number: LTI2010A00215

PATIENT
  Age: 51 Year
  Sex: Male

DRUGS (9)
  1. LANSOPRAZOLE [Suspect]
     Dosage: 30 MG (30 MG, 1 IN 1 D) ORAL   YEARS
     Route: 048
  2. LEXOMIL (BROMAZEPAM) [Suspect]
     Indication: DEPRESSION
     Dosage: 18 MG (6 MG, 3 IN 1 D) ORAL   DAYS
     Route: 048
     Dates: start: 20100501
  3. ESCITALOPRAM [Suspect]
     Dosage: 20 MG (20 MG, 1 IN 1 D) ORAL     DAYS
     Route: 048
     Dates: start: 20100501
  4. MEPRONIZINE (MEPROBAMATE, ACEPROMETAZINE) [Suspect]
     Dosage: 1 DF (1 DF, 1 IN 1 D) ORAL  DAYS
     Route: 048
     Dates: start: 20100501
  5. VALSARTAN [Suspect]
     Dosage: 160 MG (160 MG, 1 IN 1 D) ORAL   YEARS
     Route: 048
  6. FENOFIBRATE [Suspect]
     Dosage: 200 MG (200 MG, 1 IN 1 D) ORAL    YEARS
     Route: 048
  7. KARDEGIC (ACETYLSALICYLATE LYSINE) [Suspect]
     Dosage: 160 MG (160 MG, 1 IN 1 D) ORAL    YEARS
     Route: 048
  8. ADANCOR (NICORANDIL) [Suspect]
     Dosage: 40 MG (20 MG, 2 IN 1 D ORAL   YEARS
     Route: 048
  9. ACEBUTOLOL HCL [Suspect]
     Dosage: 400 MG (200 MG, 2 IN 1 D) ORAL  YEARS
     Route: 048

REACTIONS (2)
  - OPTIC NEUROPATHY [None]
  - VISUAL IMPAIRMENT [None]
